FAERS Safety Report 5709096-8 (Version None)
Quarter: 2008Q2

REPORT INFORMATION
  Report Type: 
  Country: None (occurrence: None)
  Receive Date: 20080416
  Receipt Date: 20080416
  Transmission Date: 20081010
  Serious: Yes (Hospitalization)
  Sender: FDA-Public Use
  Company Number: None

PATIENT
  Sex: Male
  Weight: 87 kg

DRUGS (3)
  1. XELODA [Suspect]
     Dosage: 1500 MG
  2. CAMPTOSAR [Suspect]
     Dosage: 170 MG
  3. ELOXATIN [Suspect]
     Dosage: 300 MG

REACTIONS (2)
  - NEUTROPENIA [None]
  - SMALL INTESTINAL OBSTRUCTION [None]
